FAERS Safety Report 15261029 (Version 1)
Quarter: 2018Q3

REPORT INFORMATION
  Report Type: Spontaneous
  Country: US (occurrence: US)
  Receive Date: 20180719
  Receipt Date: 20180719
  Transmission Date: 20181010
  Serious: No
  Sender: FDA-Public Use
  Company Number: None

PATIENT
  Age: 50 Year
  Sex: Male
  Weight: 47.17 kg

DRUGS (1)
  1. PEGLOTICASE [Suspect]
     Active Substance: PEGLOTICASE
     Indication: GOUT
     Route: 042
     Dates: start: 20180510, end: 20180510

REACTIONS (4)
  - Chest pain [None]
  - Infusion related reaction [None]
  - Chest discomfort [None]
  - Hypertension [None]

NARRATIVE: CASE EVENT DATE: 20180510
